FAERS Safety Report 7236960-3 (Version None)
Quarter: 2011Q1

REPORT INFORMATION
  Report Type: 
  Country: None (occurrence: None)
  Receive Date: 20110121
  Receipt Date: 20110112
  Transmission Date: 20110831
  Serious: Yes (Hospitalization)
  Sender: FDA-Public Use
  Company Number: US-BIOGENIDEC-2008BI001633

PATIENT
  Age: 44 Year
  Sex: Female
  Weight: 56 kg

DRUGS (4)
  1. AVONEX [Suspect]
     Route: 030
     Dates: start: 20030101
  2. AVONEX [Suspect]
     Indication: MULTIPLE SCLEROSIS
     Route: 030
     Dates: start: 19960101, end: 19990101
  3. SYNTHROID [Concomitant]
     Indication: THYROID DISORDER
  4. AVONEX [Suspect]
     Route: 030
     Dates: start: 20020101, end: 20030101

REACTIONS (5)
  - HYSTERECTOMY [None]
  - INJECTION SITE MASS [None]
  - HYPOAESTHESIA ORAL [None]
  - BREAST CANCER [None]
  - HYPOAESTHESIA FACIAL [None]
